FAERS Safety Report 19803548 (Version 2)
Quarter: 2021Q3

REPORT INFORMATION
  Report Type: Spontaneous
  Country: DK (occurrence: DK)
  Receive Date: 20210908
  Receipt Date: 20210909
  Transmission Date: 20211014
  Serious: Yes (Hospitalization)
  Sender: FDA-Public Use
  Company Number: DK-UCBSA-2021041785

PATIENT
  Age: 62 Year
  Sex: Male
  Weight: 88 kg

DRUGS (7)
  1. COMIRNATY [Suspect]
     Active Substance: TOZINAMERAN
     Indication: COVID-19 IMMUNISATION
     Dates: start: 20210513
  2. VIMPAT [Suspect]
     Active Substance: LACOSAMIDE
     Indication: EPILEPSY
     Dosage: 300MG DAILY
     Route: 048
     Dates: start: 20200304, end: 20201007
  3. LAMOTRIGIN MYLAN [Interacting]
     Active Substance: LAMOTRIGINE
     Indication: PAIN
     Dosage: 400MG DAILY
     Route: 048
     Dates: start: 20141103
  4. LAMOTRIGINE. [Interacting]
     Active Substance: LAMOTRIGINE
     Indication: PAIN
     Dosage: 400 MILLIGRAM, PER DAY
     Route: 048
     Dates: start: 20141103
  5. VIMPAT [Interacting]
     Active Substance: LACOSAMIDE
     Dosage: 50MG DAILY
     Route: 048
     Dates: start: 20201008
  6. LAMOTRIGINE. [Interacting]
     Active Substance: LAMOTRIGINE
     Indication: EPILEPSY
     Dosage: 50MG DAILY
     Route: 048
     Dates: start: 20131117
  7. FRISIUM [Interacting]
     Active Substance: CLOBAZAM
     Indication: EPILEPSY
     Dosage: 20MG DAILY
     Route: 048
     Dates: start: 20190306

REACTIONS (7)
  - Stevens-Johnson syndrome [Not Recovered/Not Resolved]
  - Drug interaction [Unknown]
  - Erythema multiforme [Recovered/Resolved]
  - Thrombosis [Not Recovered/Not Resolved]
  - Thrombocytopenia [Not Recovered/Not Resolved]
  - Petechiae [Not Recovered/Not Resolved]
  - Vasculitis [Not Recovered/Not Resolved]

NARRATIVE: CASE EVENT DATE: 20210609
